FAERS Safety Report 10722958 (Version 1)
Quarter: 2015Q1

REPORT INFORMATION
  Report Type: Spontaneous
  Country: NL (occurrence: NL)
  Receive Date: 20150120
  Receipt Date: 20150120
  Transmission Date: 20150721
  Serious: Yes (Hospitalization)
  Sender: FDA-Public Use
  Company Number: NL-RANBAXY-2014R1-80835

PATIENT
  Age: 24 Year
  Sex: Female

DRUGS (3)
  1. CEFTRIAXONE. [Concomitant]
     Active Substance: CEFTRIAXONE
     Indication: MENINGOENCEPHALITIS VIRAL
     Dosage: 2 G, BID
     Route: 042
  2. AMOXICILLIN. [Concomitant]
     Active Substance: AMOXICILLIN
     Indication: MENINGOENCEPHALITIS VIRAL
     Dosage: 12 G, DAILY
     Route: 042
  3. ACICLOVIR [Suspect]
     Active Substance: ACYCLOVIR
     Indication: MENINGOENCEPHALITIS VIRAL
     Dosage: 1500 MG, DAILY
     Route: 042

REACTIONS (2)
  - Acute kidney injury [Recovered/Resolved]
  - Crystalluria [Recovered/Resolved]
